FAERS Safety Report 6999745-9 (Version None)
Quarter: 2010Q3

REPORT INFORMATION
  Report Type: 
  Country: None (occurrence: None)
  Receive Date: 20100920
  Receipt Date: 20100428
  Transmission Date: 20110219
  Serious: No
  Sender: FDA-Public Use
  Company Number: US-ASTRAZENECA-2010SE19152

PATIENT
  Sex: Female

DRUGS (7)
  1. SEROQUEL XR [Suspect]
     Indication: HALLUCINATION, AUDITORY
     Route: 048
     Dates: start: 20100201
  2. ATENOLOL [Concomitant]
  3. LITHIUM CARBONATE [Concomitant]
  4. PREDNISOLONE [Concomitant]
  5. ATIVAN [Concomitant]
  6. ASPIRIN [Concomitant]
  7. SIMVASTATIN [Concomitant]

REACTIONS (1)
  - SKIN ODOUR ABNORMAL [None]
